FAERS Safety Report 15840354 (Version 1)
Quarter: 2019Q1

REPORT INFORMATION
  Report Type: Report from Study
  Country: IT (occurrence: IT)
  Receive Date: 20190117
  Receipt Date: 20190117
  Transmission Date: 20190417
  Serious: Yes (Other)
  Sender: FDA-Public Use
  Company Number: IT-MYLANLABS-2019M1004125

PATIENT
  Age: 82 Year
  Sex: Male

DRUGS (7)
  1. PROMAZINE [Concomitant]
     Active Substance: PROMAZINE
     Dosage: UNK
  2. QUETIAPINE. [Suspect]
     Active Substance: QUETIAPINE
     Indication: AGITATION
     Dosage: 50 MILLIGRAM, QD
     Dates: start: 20170601
  3. OMEPRAZOLE. [Concomitant]
     Active Substance: OMEPRAZOLE
     Dosage: UNK
  4. DOXAZOSIN [Concomitant]
     Active Substance: DOXAZOSIN\DOXAZOSIN MESYLATE
     Dosage: UNK
  5. TRAZODONE HYDROCHLORIDE. [Interacting]
     Active Substance: TRAZODONE HYDROCHLORIDE
     Indication: AGITATION
     Dosage: 10 GTT DROPS, QD
     Dates: start: 20170601
  6. POTASSIUM CANRENOATE [Concomitant]
     Active Substance: CANRENOATE POTASSIUM
     Dosage: UNK
  7. FINASTERIDE. [Concomitant]
     Active Substance: FINASTERIDE
     Dosage: UNK

REACTIONS (2)
  - Drug interaction [Unknown]
  - Electrocardiogram QT prolonged [Unknown]

NARRATIVE: CASE EVENT DATE: 20171206
